FAERS Safety Report 6727866-4 (Version None)
Quarter: 2010Q2

REPORT INFORMATION
  Report Type: 
  Country: None (occurrence: None)
  Receive Date: 20100517
  Receipt Date: 20100504
  Transmission Date: 20101027
  Serious: Yes (Hospitalization)
  Sender: FDA-Public Use
  Company Number: ES-ELI_LILLY_AND_COMPANY-ES201005001268

PATIENT
  Sex: Male

DRUGS (9)
  1. FORTEO [Suspect]
     Indication: OSTEOPOROSIS
     Dosage: 20 UG, DAILY (1/D)
     Route: 058
     Dates: start: 20090810
  2. OMEPRAZOLE [Concomitant]
     Indication: GASTRIC ULCER
     Dosage: 1 D/F, DAILY (1/D)
     Route: 048
  3. METFORMIN HCL [Concomitant]
     Indication: DIABETES MELLITUS
     Dosage: 1 D/F, 12 H
     Route: 048
  4. EUGLUCON [Concomitant]
     Indication: DIABETES MELLITUS
     Dosage: 1 D/F, IN BREAKFAST
     Route: 048
  5. EUGLUCON [Concomitant]
     Dosage: 1 D/F, IN LUNCH
     Route: 048
  6. UNI MASDIL [Concomitant]
     Dosage: 1 D/F, DAILY (1/D)
     Route: 048
  7. SEGURIL [Concomitant]
     Dosage: 1 D/F, DAILY (1/D)
     Route: 048
  8. ALDACTONE [Concomitant]
     Dosage: 1 D/F, DAILY (1/D)
     Route: 048
  9. PREVENCOR [Concomitant]
     Indication: HYPERCHOLESTEROLAEMIA
     Dosage: 1 D/F, DAILY (1/D)
     Route: 048

REACTIONS (2)
  - SKIN ULCER [None]
  - TOE AMPUTATION [None]
